FAERS Safety Report 22171394 (Version 3)
Quarter: 2023Q2

REPORT INFORMATION
  Report Type: Spontaneous
  Country: US (occurrence: US)
  Receive Date: 20230404
  Receipt Date: 20230518
  Transmission Date: 20230721
  Serious: No
  Sender: FDA-Public Use
  Company Number: US-PFIZER INC-202300130613

PATIENT
  Age: 4 Year
  Sex: Female
  Weight: 12.7 kg

DRUGS (1)
  1. GENOTROPIN [Suspect]
     Active Substance: SOMATROPIN
     Indication: Blood growth hormone abnormal
     Dosage: 0.5 MG
     Dates: start: 20230320

REACTIONS (6)
  - Device difficult to use [Unknown]
  - Device defective [Unknown]
  - Device mechanical issue [Unknown]
  - Needle issue [Unknown]
  - Device dispensing error [Unknown]
  - Poor quality device used [Unknown]
